FAERS Safety Report 13382229 (Version 1)
Quarter: 2017Q1

REPORT INFORMATION
  Report Type: Spontaneous
  Country: US (occurrence: US)
  Receive Date: 20170329
  Receipt Date: 20170329
  Transmission Date: 20170429
  Serious: No
  Sender: FDA-Public Use
  Company Number: US-BAYER-2017-045719

PATIENT

DRUGS (2)
  1. ALEVE [Suspect]
     Active Substance: NAPROXEN SODIUM
     Indication: HEADACHE
     Dosage: TAKE 2 TO START TO SEE IF THAT WILL SUFFICE THE PAIN, IF NOT, TAKE 2 OR 3 AFTER 4 OR 5 HRS
  2. ALEVE [Suspect]
     Active Substance: NAPROXEN SODIUM
     Indication: MUSCLE SPASMS

REACTIONS (2)
  - Product use issue [Unknown]
  - Drug effect incomplete [Unknown]
